FAERS Safety Report 18836634 (Version 1)
Quarter: 2021Q1

REPORT INFORMATION
  Report Type: Spontaneous
  Country: US (occurrence: US)
  Receive Date: 20210203
  Receipt Date: 20210203
  Transmission Date: 20210419
  Serious: No
  Sender: FDA-Public Use
  Company Number: US-ALLERGAN-2011730US

PATIENT
  Age: 5 Year
  Sex: Female

DRUGS (1)
  1. BOTOX [Suspect]
     Active Substance: ONABOTULINUMTOXINA
     Indication: MUSCLE SPASTICITY
     Dosage: 180 UNITS, 10 UNITS/KILO, SINGLE
     Dates: start: 20200303, end: 20200303

REACTIONS (4)
  - Influenza [Recovering/Resolving]
  - Off label use [Unknown]
  - Pyrexia [Recovering/Resolving]
  - General physical health deterioration [Recovering/Resolving]

NARRATIVE: CASE EVENT DATE: 202003
